FAERS Safety Report 5688381-2 (Version None)
Quarter: 2008Q1

REPORT INFORMATION
  Report Type: 
  Country: None (occurrence: None)
  Receive Date: 20080331
  Receipt Date: 20080326
  Transmission Date: 20080703
  Serious: Yes (Hospitalization)
  Sender: FDA-Public Use
  Company Number: PHBS2008SE03669

PATIENT
  Age: 76 Year
  Sex: Female

DRUGS (8)
  1. TEGRETOL [Suspect]
     Indication: TRIGEMINAL NEURALGIA
     Dosage: UNK, UNK
     Dates: start: 20071201
  2. LEVOTHYROXINE SODIUM [Concomitant]
     Dosage: 75 UG, UNK
  3. RAMIPRIL [Concomitant]
  4. ELOCON [Concomitant]
  5. LACTULOSE [Concomitant]
     Dosage: 670 MG/ML, UNK
  6. CANODERM [Concomitant]
  7. PANTOPRAZOLE SODIUM [Concomitant]
     Dosage: 20 MG, UNK
  8. SODIUM PICOSULFATE [Concomitant]
     Route: 048

REACTIONS (8)
  - CANDIDIASIS [None]
  - DEHYDRATION [None]
  - DUODENITIS [None]
  - ENDOSCOPY UPPER GASTROINTESTINAL TRACT [None]
  - FATIGUE [None]
  - IMPAIRED SELF-CARE [None]
  - NAUSEA [None]
  - VOMITING [None]
